FAERS Safety Report 8766767 (Version 3)
Quarter: 2014Q1

REPORT INFORMATION
  Report Type: Spontaneous
  Country: US (occurrence: US)
  Receive Date: 20120904
  Receipt Date: 20140326
  Transmission Date: 20141002
  Serious: Yes (Hospitalization, Other)
  Sender: FDA-Public Use
  Company Number: US-BAYER-2012-090190

PATIENT
  Age: 26 Year
  Sex: Female
  Weight: 76.64 kg

DRUGS (2)
  1. YASMIN [Suspect]
     Indication: CONTRACEPTION
     Dosage: UNK
     Dates: start: 2003, end: 2011
  2. YAZ [Suspect]
     Indication: CONTRACEPTION
     Dosage: UNK
     Dates: start: 2003, end: 2011

REACTIONS (9)
  - Deep vein thrombosis [None]
  - Pulmonary embolism [Recovered/Resolved]
  - Cholelithiasis [None]
  - Injury [None]
  - Pain [Recovered/Resolved]
  - Anxiety [None]
  - Anhedonia [None]
  - Fear of disease [None]
  - Psychological trauma [None]
